FAERS Safety Report 22114979 (Version 1)
Quarter: 2023Q1

REPORT INFORMATION
  Report Type: Spontaneous
  Country: US (occurrence: US)
  Receive Date: 20230320
  Receipt Date: 20230320
  Transmission Date: 20230418
  Serious: No
  Sender: FDA-Public Use
  Company Number: US-Covis Pharma GmbH-2023COV00499

PATIENT
  Sex: Female

DRUGS (1)
  1. MAKENA [Suspect]
     Active Substance: HYDROXYPROGESTERONE CAPROATE
     Indication: Product used for unknown indication

REACTIONS (4)
  - Erythema [Unknown]
  - Peripheral swelling [Unknown]
  - Pruritus [Unknown]
  - Urticaria [Unknown]
